FAERS Safety Report 7477881-0 (Version None)
Quarter: 2011Q2

REPORT INFORMATION
  Report Type: 
  Country: None (occurrence: None)
  Receive Date: 20110513
  Receipt Date: 20110504
  Transmission Date: 20111010
  Serious: Yes (Other)
  Sender: FDA-Public Use
  Company Number: US-AMGEN-USASP2011023325

PATIENT
  Age: 18 Year
  Sex: Female

DRUGS (1)
  1. ENBREL [Suspect]
     Indication: ANKYLOSING SPONDYLITIS
     Dosage: 50 MG, QWK
     Dates: start: 20100607

REACTIONS (10)
  - ANTINEUTROPHIL CYTOPLASMIC ANTIBODY INCREASED [None]
  - ABDOMINAL PAIN UPPER [None]
  - RASH [None]
  - MYALGIA [None]
  - FATIGUE [None]
  - HEADACHE [None]
  - BACK PAIN [None]
  - INJECTION SITE PAIN [None]
  - MALAISE [None]
  - INJECTION SITE REACTION [None]
